FAERS Safety Report 8697459 (Version 2)
Quarter: 2012Q4

REPORT INFORMATION
  Report Type: 
  Country: US (occurrence: ZA)
  Receive Date: 20120801
  Receipt Date: 20120919
  Transmission Date: 20130627
  Serious: Yes (Other)
  Sender: FDA-Public Use
  Company Number: US-BMSGILMSD-2012-0058843

PATIENT
  Age: 30 Year
  Sex: Female

DRUGS (1)
  1. UNSPECIFIED INGREDIENT [Suspect]

REACTIONS (1)
  - Platelet count decreased [Recovered/Resolved]
